FAERS Safety Report 7884685-3 (Version None)
Quarter: 2011Q4

REPORT INFORMATION
  Report Type: 
  Country: None (occurrence: None)
  Receive Date: 20111102
  Receipt Date: 20111024
  Transmission Date: 20120403
  Serious: Yes (Hospitalization)
  Sender: FDA-Public Use
  Company Number: CA-PFIZER INC-2011221790

PATIENT
  Age: 67 Year
  Sex: Male

DRUGS (2)
  1. LASIX [Concomitant]
     Dosage: 40 MG, IN THE MORNING
     Route: 048
  2. PANTOPRAZOLE SODIUM [Suspect]
     Indication: GASTROOESOPHAGEAL REFLUX DISEASE
     Dosage: 40 MG, 1X/DAY
     Route: 048
     Dates: start: 20080101, end: 20110506

REACTIONS (1)
  - HYPOMAGNESAEMIA [None]
